FAERS Safety Report 4748483-1 (Version None)
Quarter: 2005Q3

REPORT INFORMATION
  Report Type: 
  Country: None (occurrence: None)
  Receive Date: 20050817
  Receipt Date: 20050817
  Transmission Date: 20060218
  Serious: Yes (Other)
  Sender: FDA-Public Use
  Company Number: None

PATIENT
  Age: 46 Year

DRUGS (2)
  1. OXYCODONE HCL [Suspect]
     Indication: CERVICOBRACHIAL SYNDROME
     Dosage: ONE 40 MG PO @ HS
     Route: 048
     Dates: start: 20050617
  2. OXYCODONE HCL [Suspect]
     Indication: CERVICOBRACHIAL SYNDROME
     Dosage: ONE 40 MG PO @ HS
     Route: 048
     Dates: start: 20050718

REACTIONS (4)
  - DRUG EFFECT DECREASED [None]
  - FATIGUE [None]
  - HYPERSOMNIA [None]
  - THERAPEUTIC RESPONSE UNEXPECTED WITH DRUG SUBSTITUTION [None]
